FAERS Safety Report 4435378-6 (Version None)
Quarter: 2004Q3

REPORT INFORMATION
  Report Type: 
  Country: None (occurrence: None)
  Receive Date: 20040826
  Receipt Date: 20040812
  Transmission Date: 20050211
  Serious: Yes (Life-Threatening, Hospitalization)
  Sender: FDA-Public Use
  Company Number: 2004228034FR

PATIENT
  Age: 18 Month
  Sex: Male

DRUGS (9)
  1. VANTIN [Suspect]
     Dosage: ORAL
     Route: 048
     Dates: start: 20040216, end: 20040216
  2. BACITRACIN [Suspect]
     Dosage: ORAL
     Route: 048
     Dates: start: 20040212, end: 20040214
  3. MAXILASE-BACITRACINE(ALPHA-AMYLASE BACTERIAL) [Suspect]
     Dosage: ORAL
     Route: 048
     Dates: start: 20040212, end: 20040214
  4. PIVALONE(TIXOCORTOL PIVALATE) SPRAY [Suspect]
     Dosage: INTRA-AMNIOTIC
     Route: 012
     Dates: start: 20040212, end: 20040214
  5. METOCLOPRAMIDE(METOCLOPRAMIDE) SOLUTION, STERILE [Suspect]
     Dosage: ORAL
     Route: 048
     Dates: start: 20040214, end: 20040216
  6. PANFUREX(NIFUROXAZIDE) SOLUTION, ORAL [Suspect]
     Dosage: ORAL
     Route: 048
     Dates: start: 20040214, end: 20040216
  7. IBUPIRAC(IBUPROFEN) SUSPENSION, ORAL [Suspect]
     Dosage: ORAL
     Route: 048
     Dates: start: 20040214, end: 20040216
  8. ACETAMINOPHEN [Concomitant]
  9. MOTILIUM [Concomitant]

REACTIONS (21)
  - CARDIOMEGALY [None]
  - CHEST X-RAY ABNORMAL [None]
  - CHLAMYDIAL INFECTION [None]
  - CONJUNCTIVAL DISORDER [None]
  - COOMBS DIRECT TEST POSITIVE [None]
  - DEHYDRATION [None]
  - GASTROENTERITIS [None]
  - HAEMATURIA [None]
  - HAEMOLYTIC ANAEMIA [None]
  - HEART RATE INCREASED [None]
  - JAUNDICE [None]
  - KIDNEY ENLARGEMENT [None]
  - LEUKOCYTOSIS [None]
  - MUMPS ANTIBODY TEST POSITIVE [None]
  - NORMOCHROMIC NORMOCYTIC ANAEMIA [None]
  - OTITIS MEDIA [None]
  - OXYGEN SATURATION DECREASED [None]
  - PERITONEAL DIALYSIS [None]
  - PLATELET COUNT INCREASED [None]
  - RENAL FAILURE ACUTE [None]
  - RENAL TUBULAR NECROSIS [None]
